FAERS Safety Report 20757423 (Version 6)
Quarter: 2022Q4

REPORT INFORMATION
  Report Type: Report from Study
  Country: JP (occurrence: JP)
  Receive Date: 20220427
  Receipt Date: 20221020
  Transmission Date: 20230112
  Serious: Yes (Death, Life-Threatening, Hospitalization, Other)
  Sender: FDA-Public Use
  Company Number: JP-PFIZER INC-202200569856

PATIENT
  Age: 74 Year
  Sex: Male
  Weight: 55 kg

DRUGS (6)
  1. TALAZOPARIB [Suspect]
     Active Substance: TALAZOPARIB
     Indication: Prostate cancer metastatic
     Dosage: 1X/DAY
     Route: 048
     Dates: start: 20220203, end: 20220324
  2. ENZALUTAMIDE [Suspect]
     Active Substance: ENZALUTAMIDE
     Indication: Prostate cancer metastatic
     Dosage: 160 MG, 1X/DAY
     Route: 048
     Dates: start: 20220203, end: 20220316
  3. ENZALUTAMIDE [Suspect]
     Active Substance: ENZALUTAMIDE
     Dosage: 80 MG, 1X/DAY
     Route: 048
     Dates: start: 20220317, end: 20220324
  4. LOXOPROFEN [Concomitant]
     Active Substance: LOXOPROFEN
     Indication: Bone pain
     Dosage: 60 MG, 3X/DAY
     Route: 048
     Dates: start: 20220317
  5. REBAMIPIDE [Concomitant]
     Active Substance: REBAMIPIDE
     Indication: Gastrointestinal disorder
     Dosage: 100 MG, 3X/DAY
     Route: 048
     Dates: start: 20220317
  6. METOCLOPRAMIDE [Concomitant]
     Active Substance: METOCLOPRAMIDE
     Indication: Nausea
     Dosage: 5 MG, 3X/DAY
     Route: 048
     Dates: start: 20220303

REACTIONS (3)
  - Second primary malignancy [Fatal]
  - Malignant neoplasm of unknown primary site [Fatal]
  - Pancreatic carcinoma [Fatal]

NARRATIVE: CASE EVENT DATE: 20220331
